FAERS Safety Report 8232313-X (Version None)
Quarter: 2012Q1

REPORT INFORMATION
  Report Type: 
  Country: None (occurrence: None)
  Receive Date: 20120320
  Receipt Date: 20120315
  Transmission Date: 20120608
  Serious: Yes (Hospitalization)
  Sender: FDA-Public Use
  Company Number: 120104

PATIENT
  Age: 82 Year
  Sex: Female
  Weight: 78.9259 kg

DRUGS (3)
  1. BABY ASPIRIN DAILY (STOPPED ONE WEEK PRIOR) [Concomitant]
  2. SYNTHROID (AM OF 03/07/12) [Concomitant]
  3. SUPREP BOWEL PREP KIT [Suspect]
     Indication: COLONOSCOPY
     Dosage: 2X 6OZ. BOTTLE/1X/PO
     Route: 048
     Dates: start: 20120307, end: 20120308

REACTIONS (5)
  - DEHYDRATION [None]
  - BLOOD PRESSURE INCREASED [None]
  - COLON POLYPECTOMY [None]
  - NAUSEA [None]
  - RETCHING [None]
